FAERS Safety Report 8623090-9 (Version None)
Quarter: 2012Q3

REPORT INFORMATION
  Report Type: 
  Country: None (occurrence: None)
  Receive Date: 20120827
  Receipt Date: 20120817
  Transmission Date: 20120928
  Serious: Yes (Other)
  Sender: FDA-Public Use
  Company Number: US-JNJFOC-20120809030

PATIENT
  Sex: Female
  Weight: 84.37 kg

DRUGS (4)
  1. ELMIRON [Suspect]
     Indication: CYSTITIS INTERSTITIAL
     Route: 048
  2. VESICARE [Suspect]
     Indication: CYSTITIS INTERSTITIAL
     Dosage: FOR EVERY NIGHT
     Route: 048
  3. SILDENAFIL CITRATE [Suspect]
     Indication: PRODUCT USED FOR UNKNOWN INDICATION
     Dosage: 1 TABLET  APPROXIMATELY 1 HOUR BEFORE SEXUAL ACTIVITY
     Route: 048
  4. AN UNKNOWN MEDICATION [Concomitant]
     Indication: PRODUCT USED FOR UNKNOWN INDICATION
     Route: 048

REACTIONS (9)
  - HAEMATURIA [None]
  - ARTHRALGIA [None]
  - CYSTITIS INTERSTITIAL [None]
  - URINARY TRACT INFECTION [None]
  - PYURIA [None]
  - BREAST CANCER [None]
  - OVARIAN FAILURE [None]
  - MYALGIA [None]
  - BACK PAIN [None]
